FAERS Safety Report 24047469 (Version 1)
Quarter: 2024Q3

REPORT INFORMATION
  Report Type: Spontaneous
  Country: US (occurrence: US)
  Receive Date: 20240703
  Receipt Date: 20240703
  Transmission Date: 20241017
  Serious: No
  Sender: UROGEN PHARMA
  Company Number: US-UROGEN PHARMA LTD.-2024-UGN-000061

PATIENT

DRUGS (2)
  1. JELMYTO [Suspect]
     Active Substance: MITOMYCIN
     Indication: Transitional cell cancer of the renal pelvis and ureter
     Dosage: 80 MILLIGRAM, INSTILLATION
     Dates: start: 20240411, end: 20240411
  2. JELMYTO [Suspect]
     Active Substance: MITOMYCIN
     Dosage: 80 MILLIGRAM, INSTILLATION
     Dates: start: 20240425, end: 20240425

REACTIONS (2)
  - Instillation site infection [Unknown]
  - Back pain [Unknown]

NARRATIVE: CASE EVENT DATE: 20240401
